FAERS Safety Report 15889341 (Version 2)
Quarter: 2019Q1

REPORT INFORMATION
  Report Type: Spontaneous
  Country: FR (occurrence: FR)
  Receive Date: 20190130
  Receipt Date: 20190208
  Transmission Date: 20190417
  Serious: Yes (Hospitalization)
  Sender: FDA-Public Use
  Company Number: FR-LINDE-FR-LHC-2019014

PATIENT
  Age: 32 Year
  Sex: Female

DRUGS (1)
  1. PROTOXYDE D^AZOTE MEDICINAL, LINDE HEALTHCARE [Suspect]
     Active Substance: NITROUS OXIDE
     Indication: ANAESTHESIA
     Route: 055
     Dates: start: 20190116, end: 20190116

REACTIONS (9)
  - Dyspnoea exertional [Recovering/Resolving]
  - Hypotension [Recovering/Resolving]
  - Chest pain [Recovering/Resolving]
  - Left ventricular dysfunction [Recovering/Resolving]
  - Hypoxia [Recovering/Resolving]
  - Chest discomfort [Recovering/Resolving]
  - Cough [Recovering/Resolving]
  - Pneumonia [Recovering/Resolving]
  - Pericarditis [Recovering/Resolving]

NARRATIVE: CASE EVENT DATE: 20190116
